FAERS Safety Report 9355922 (Version 1)
Quarter: 2013Q2

REPORT INFORMATION
  Report Type: Spontaneous
  Country: FR (occurrence: FR)
  Receive Date: 20130619
  Receipt Date: 20130619
  Transmission Date: 20140414
  Serious: Yes (Other)
  Sender: FDA-Public Use
  Company Number: FR-ROCHE-1236661

PATIENT
  Age: 72 Year
  Sex: Female

DRUGS (8)
  1. MABTHERA [Suspect]
     Indication: EXTRANODAL MARGINAL ZONE B-CELL LYMPHOMA (MALT TYPE)
     Route: 042
     Dates: start: 20130129
  2. MABTHERA [Suspect]
     Route: 042
     Dates: start: 20130325
  3. MABTHERA [Suspect]
     Dosage: DOSE REDUCED
     Route: 042
     Dates: start: 20130422, end: 20130422
  4. MABTHERA [Suspect]
     Route: 042
     Dates: end: 20130425
  5. LEVACT (FRANCE) [Suspect]
     Indication: LYMPHOMA
     Route: 042
     Dates: start: 20130129
  6. LEVACT (FRANCE) [Suspect]
     Route: 042
     Dates: start: 20130325
  7. LEVACT (FRANCE) [Suspect]
     Route: 042
     Dates: start: 20130422, end: 20130521
  8. LEVACT (FRANCE) [Suspect]
     Route: 042
     Dates: start: 20130522

REACTIONS (5)
  - Tremor [Recovered/Resolved]
  - Chills [Recovered/Resolved]
  - Erythema [Recovered/Resolved]
  - Dermatitis exfoliative [Recovered/Resolved]
  - Hypersensitivity [Recovered/Resolved]
